FAERS Safety Report 24416919 (Version 1)
Quarter: 2024Q4

REPORT INFORMATION
  Report Type: Report from Study
  Country: CA (occurrence: CA)
  Receive Date: 20241009
  Receipt Date: 20241009
  Transmission Date: 20250115
  Serious: Yes (Other)
  Sender: SERVIER
  Company Number: CA-SERVIER-S24010445

PATIENT

DRUGS (9)
  1. VORASIDENIB [Suspect]
     Active Substance: VORASIDENIB
     Indication: Product used for unknown indication
     Dosage: 40 MG, QD
     Route: 048
     Dates: start: 20240712, end: 20240725
  2. VORASIDENIB [Suspect]
     Active Substance: VORASIDENIB
     Dosage: 40 MG, QD
     Route: 048
     Dates: start: 20240729, end: 20240819
  3. VORASIDENIB [Suspect]
     Active Substance: VORASIDENIB
     Dosage: 20 MG, QD
     Route: 048
     Dates: start: 20240911
  4. LEVETIRACETAM [Concomitant]
     Active Substance: LEVETIRACETAM
     Indication: Seizure
     Dosage: 1500 MG, BID
     Route: 048
     Dates: start: 202204
  5. VITAMIN C [Concomitant]
     Active Substance: ASCORBIC ACID
     Indication: Product used for unknown indication
     Dosage: UNK
     Route: 065
     Dates: end: 20240726
  6. VITAMIN D [Concomitant]
     Active Substance: VITAMIN D NOS
     Indication: Product used for unknown indication
     Dosage: UNK
     Route: 065
     Dates: end: 20240726
  7. MAGNESIUM [Concomitant]
     Active Substance: MAGNESIUM
     Indication: Product used for unknown indication
     Dosage: UNK
     Route: 065
     Dates: end: 20240726
  8. CREATINE [Concomitant]
     Active Substance: CREATINE
     Indication: Product used for unknown indication
     Dosage: UNK, QD
     Route: 065
     Dates: start: 202402, end: 20240726
  9. PROTEIN [Concomitant]
     Active Substance: PROTEIN
     Indication: Product used for unknown indication
     Dosage: UNK, QD
     Route: 065
     Dates: end: 20240726

REACTIONS (2)
  - Hepatotoxicity [Recovering/Resolving]
  - Hepatotoxicity [Recovered/Resolved]

NARRATIVE: CASE EVENT DATE: 20240725
